FAERS Safety Report 6775779-4 (Version None)
Quarter: 2010Q2

REPORT INFORMATION
  Report Type: 
  Country: None (occurrence: None)
  Receive Date: 20100617
  Receipt Date: 20100610
  Transmission Date: 20101027
  Serious: Yes (Other)
  Sender: FDA-Public Use
  Company Number: US-ABBOTT-10P-163-0640404-00

PATIENT
  Sex: Male

DRUGS (1)
  1. HUMIRA [Suspect]
     Indication: CROHN'S DISEASE

REACTIONS (8)
  - ARTHRALGIA [None]
  - DEMYELINATION [None]
  - HYPOAESTHESIA [None]
  - MOBILITY DECREASED [None]
  - MUSCULAR WEAKNESS [None]
  - MYALGIA [None]
  - NEURALGIA [None]
  - RADIAL NERVE INJURY [None]
